FAERS Safety Report 9451338 (Version 1)
Quarter: 2013Q3

REPORT INFORMATION
  Report Type: Spontaneous
  Country: US (occurrence: US)
  Receive Date: 20130809
  Receipt Date: 20130809
  Transmission Date: 20140515
  Serious: Yes (Disabling, Other)
  Sender: FDA-Public Use
  Company Number: US-TEVA-359508USA

PATIENT
  Sex: Male

DRUGS (4)
  1. METOCLOPRAMIDE [Suspect]
     Indication: PANCREATITIS
     Dates: end: 2009
  2. METOCLOPRAMIDE [Suspect]
     Indication: GASTROOESOPHAGEAL REFLUX DISEASE
  3. REGLAN [Suspect]
     Dates: end: 2009
  4. METOCLOPRAMIDE HYDROCHLORIDE [Suspect]

REACTIONS (4)
  - Tardive dyskinesia [Unknown]
  - Nervous system disorder [Unknown]
  - Extrapyramidal disorder [Unknown]
  - Dyskinesia [Unknown]
